FAERS Safety Report 9267590 (Version 1)
Quarter: 2013Q2

REPORT INFORMATION
  Report Type: Spontaneous
  Country: US (occurrence: US)
  Receive Date: 20130502
  Receipt Date: 20130502
  Transmission Date: 20140414
  Serious: Yes (Hospitalization)
  Sender: FDA-Public Use
  Company Number: US-ALEXION-A201200558

PATIENT
  Age: 31 Year
  Sex: Female
  Weight: 54 kg

DRUGS (23)
  1. SOLIRIS 300MG [Suspect]
     Indication: HAEMOLYTIC URAEMIC SYNDROME
     Dosage: 1200 MG, Q2W
     Route: 042
     Dates: end: 20120516
  2. SOLIRIS 300MG [Suspect]
     Dosage: 900 MG, QW
     Route: 042
     Dates: start: 20120516
  3. ZOFRAN [Concomitant]
     Indication: NAUSEA
     Dosage: 4 MG, PRN
     Route: 048
  4. PROCRIT [Concomitant]
     Indication: BLOOD IRON DECREASED
     Dosage: 20000 UNITS QW
     Route: 058
  5. PROCRIT [Concomitant]
     Dosage: QMONTH
  6. AMBIEN [Concomitant]
     Indication: SLEEP DISORDER
     Dosage: 12.5 MG, QD
     Route: 048
  7. PROGRAF [Concomitant]
     Indication: PROPHYLAXIS AGAINST TRANSPLANT REJECTION
     Dosage: 1 MG, BID
     Route: 048
  8. PREDNISONE [Concomitant]
     Indication: PROPHYLAXIS AGAINST TRANSPLANT REJECTION
     Dosage: 5 MG, QD
     Route: 048
  9. MYFORTIC [Concomitant]
     Indication: PROPHYLAXIS AGAINST TRANSPLANT REJECTION
     Dosage: 360 MG, BID
     Route: 048
  10. RAPAMUNE [Concomitant]
     Indication: PROPHYLAXIS AGAINST TRANSPLANT REJECTION
     Dosage: 3 TABS QD
     Route: 048
  11. MAGNESIUM SULFATE [Concomitant]
     Indication: MIGRAINE
     Dosage: 5 MG, PRN
     Route: 048
  12. FLEXERIL [Concomitant]
     Indication: MUSCLE SPASMS
     Dosage: 10 MG, PRN
     Route: 048
  13. NORVASC [Concomitant]
     Indication: HYPERTENSION
     Dosage: 10 MG, QD
     Route: 048
  14. TRAMADOL [Concomitant]
     Indication: HEADACHE
     Dosage: 50 MG, PRN
     Route: 048
  15. LASIX [Concomitant]
     Indication: FLUID RETENTION
     Dosage: 40 MG, BID
     Route: 048
  16. ZOLOFT [Concomitant]
     Indication: DEPRESSION
     Dosage: 100 MG, QD
     Route: 048
  17. LABETALOL [Concomitant]
     Indication: HYPERTENSION
     Dosage: 300 MG, BID
     Route: 048
  18. CALCIUM ACETATE [Concomitant]
     Indication: PHOSPHORUS METABOLISM DISORDER
     Dosage: 667 MG 3-5 WITH MEALS
     Route: 048
  19. RENVELA [Concomitant]
     Indication: DIALYSIS
     Dosage: 800 MG 3 - 5 WITH MEALS
     Route: 048
  20. XANAX [Concomitant]
     Indication: ANXIETY
     Dosage: 1/2 TAB BID
     Route: 048
  21. ULORIC [Concomitant]
     Indication: GOUT
     Dosage: 20 MG, QD
     Route: 048
  22. OMEPRAZOLE [Concomitant]
     Indication: GASTROOESOPHAGEAL REFLUX DISEASE
     Dosage: 20 MG, QD
     Route: 048
  23. DOXAZOSIN [Concomitant]
     Indication: HYPERTENSION
     Dosage: 2 MG, BID
     Route: 048

REACTIONS (12)
  - Haemolytic uraemic syndrome [Not Recovered/Not Resolved]
  - Condition aggravated [Not Recovered/Not Resolved]
  - Blood lactate dehydrogenase increased [Not Recovered/Not Resolved]
  - Drug ineffective [Not Recovered/Not Resolved]
  - Platelet count decreased [Recovering/Resolving]
  - Stress [Recovered/Resolved]
  - Migraine [Unknown]
  - Contusion [Recovered/Resolved]
  - Panic attack [Recovered/Resolved]
  - Anaemia [Not Recovered/Not Resolved]
  - Anxiety [Recovered/Resolved]
  - Epistaxis [Recovered/Resolved]
